FAERS Safety Report 6933733-3 (Version None)
Quarter: 2010Q3

REPORT INFORMATION
  Report Type: 
  Country: None (occurrence: None)
  Receive Date: 20100817
  Receipt Date: 20100802
  Transmission Date: 20110219
  Serious: Yes (Other)
  Sender: FDA-Public Use
  Company Number: AUR-APL-2010-02000

PATIENT
  Age: 62 Year
  Sex: Male

DRUGS (3)
  1. SIMVASTATIN [Suspect]
     Dates: start: 20091201, end: 20100501
  2. PERSANTINE [Concomitant]
  3. ASCAL [Concomitant]

REACTIONS (6)
  - ARTHRALGIA [None]
  - CEREBRAL INFARCTION [None]
  - FATIGUE [None]
  - MYALGIA [None]
  - OEDEMA [None]
  - OEDEMA PERIPHERAL [None]
